FAERS Safety Report 21281007 (Version 2)
Quarter: 2022Q4

REPORT INFORMATION
  Report Type: Spontaneous
  Country: US (occurrence: US)
  Receive Date: 20220901
  Receipt Date: 20221102
  Transmission Date: 20230113
  Serious: Yes (Other)
  Sender: FDA-Public Use
  Company Number: US-PFIZER INC-202201108561

PATIENT
  Age: 76 Year
  Sex: Male
  Weight: 101.6 kg

DRUGS (1)
  1. VYNDAMAX [Suspect]
     Active Substance: TAFAMIDIS
     Indication: Cardiac amyloidosis
     Dosage: 61 MG, DAILY
     Dates: start: 202004

REACTIONS (3)
  - Weight increased [Unknown]
  - Abdominal distension [Unknown]
  - Viral sinusitis [Unknown]
